FAERS Safety Report 4896458-4 (Version None)
Quarter: 2005Q4

REPORT INFORMATION
  Report Type: 
  Country: None (occurrence: None)
  Receive Date: 20051220
  Receipt Date: 20051026
  Transmission Date: 20060501
  Serious: Yes (Other)
  Sender: FDA-Public Use
  Company Number: 422763

PATIENT
  Age: 83 Year
  Sex: Female
  Weight: 57.6 kg

DRUGS (2)
  1. BONIVA [Suspect]
     Indication: OSTEOPOROSIS
     Dosage: 150MG ORAL
     Route: 048
     Dates: start: 20051026
  2. GLYBURIDE [Concomitant]

REACTIONS (2)
  - BLOOD GLUCOSE [None]
  - DIZZINESS [None]
